FAERS Safety Report 8840527 (Version 1)
Quarter: 2012Q4

REPORT INFORMATION
  Report Type: 
  Country: US (occurrence: US)
  Receive Date: 20121015
  Receipt Date: 20121015
  Transmission Date: 20130627
  Serious: Yes (Other)
  Sender: FDA-Public Use
  Company Number: US-ROCHE-1115763

PATIENT
  Sex: Female
  Weight: 110.97 kg

DRUGS (1)
  1. NUTROPIN [Suspect]
     Indication: DWARFISM
     Route: 065

REACTIONS (7)
  - Fatigue [Unknown]
  - Hyperlipidaemia [Unknown]
  - Autoimmune thyroiditis [Unknown]
  - Fibromyalgia [Unknown]
  - Glucose tolerance impaired [Unknown]
  - Obesity [Unknown]
  - Abdominal discomfort [Unknown]
